FAERS Safety Report 4709773-1 (Version None)
Quarter: 2005Q3

REPORT INFORMATION
  Report Type: 
  Country: None (occurrence: None)
  Receive Date: 20050707
  Receipt Date: 20050615
  Transmission Date: 20060218
  Serious: No
  Sender: FDA-Public Use
  Company Number: US_0506118577

PATIENT
  Age: 40 Year
  Weight: 104 kg

DRUGS (4)
  1. ZYPREXA [Suspect]
     Indication: DEPRESSION
     Dates: start: 20020111
  2. PAXIL [Concomitant]
  3. ARTHROTEC [Concomitant]
  4. VIOXX [Concomitant]

REACTIONS (5)
  - BLOOD TRIGLYCERIDES INCREASED [None]
  - DIABETES MELLITUS [None]
  - HAEMATOCHEZIA [None]
  - HYPOAESTHESIA [None]
  - WEIGHT INCREASED [None]
